FAERS Safety Report 15931145 (Version 3)
Quarter: 2019Q2

REPORT INFORMATION
  Report Type: Spontaneous
  Country: US (occurrence: US)
  Receive Date: 20190207
  Receipt Date: 20190419
  Transmission Date: 20190711
  Serious: Yes (Other)
  Sender: FDA-Public Use
  Company Number: US-ASTRAZENECA-2018SF15058

PATIENT
  Age: 16884 Day
  Sex: Female
  Weight: 79.8 kg

DRUGS (35)
  1. GLIPIZIDE. [Concomitant]
     Active Substance: GLIPIZIDE
  2. NOVOLOG [Concomitant]
     Active Substance: INSULIN ASPART
  3. EFFEXOR [Concomitant]
     Active Substance: VENLAFAXINE HYDROCHLORIDE
  4. TRAZODONE [Concomitant]
     Active Substance: TRAZODONE HYDROCHLORIDE
  5. PROMETHAZINE [Concomitant]
     Active Substance: PROMETHAZINE\PROMETHAZINE HYDROCHLORIDE
  6. HYDROCODONE [Concomitant]
     Active Substance: HYDROCODONE
  7. PRILOSEC [Suspect]
     Active Substance: OMEPRAZOLE MAGNESIUM
     Indication: GASTROOESOPHAGEAL REFLUX DISEASE
     Dosage: GENERIC
     Route: 048
     Dates: start: 20160317
  8. ONDANSETRON [Concomitant]
     Active Substance: ONDANSETRON
  9. PRILOSEC [Suspect]
     Active Substance: OMEPRAZOLE MAGNESIUM
     Indication: GASTROOESOPHAGEAL REFLUX DISEASE
     Route: 048
     Dates: start: 2009, end: 2012
  10. OXYCODONE [Concomitant]
     Active Substance: OXYCODONE
  11. CARISOPRODOL. [Concomitant]
     Active Substance: CARISOPRODOL
  12. PRILOSEC [Suspect]
     Active Substance: OMEPRAZOLE MAGNESIUM
     Indication: GASTROOESOPHAGEAL REFLUX DISEASE
     Route: 048
     Dates: start: 2007, end: 2018
  13. PROTONIX [Suspect]
     Active Substance: PANTOPRAZOLE SODIUM
     Indication: GASTROOESOPHAGEAL REFLUX DISEASE
     Route: 065
     Dates: start: 2009, end: 2012
  14. METFORMIN [Concomitant]
     Active Substance: METFORMIN HYDROCHLORIDE
  15. ALBUTEROL. [Concomitant]
     Active Substance: ALBUTEROL
  16. AMIODARONE [Concomitant]
     Active Substance: AMIODARONE
  17. LOPERAMIDE [Concomitant]
     Active Substance: LOPERAMIDE
  18. PROTONIX [Suspect]
     Active Substance: PANTOPRAZOLE SODIUM
     Indication: GASTROOESOPHAGEAL REFLUX DISEASE
     Route: 065
     Dates: start: 2007, end: 2018
  19. LIPITOR [Concomitant]
     Active Substance: ATORVASTATIN CALCIUM
  20. DOXYCYCLINE. [Concomitant]
     Active Substance: DOXYCYCLINE
  21. AZITHROMYCIN ANHYDROUS. [Concomitant]
     Active Substance: AZITHROMYCIN ANHYDROUS
  22. PRILOSEC [Suspect]
     Active Substance: OMEPRAZOLE MAGNESIUM
     Indication: GASTROOESOPHAGEAL REFLUX DISEASE
     Dosage: GENERIC
     Route: 048
     Dates: start: 2012, end: 2017
  23. LORATADINE. [Concomitant]
     Active Substance: LORATADINE
  24. SIMVASTATIN. [Concomitant]
     Active Substance: SIMVASTATIN
  25. TRAMADOL. [Concomitant]
     Active Substance: TRAMADOL
  26. ZOLPIDEM [Concomitant]
     Active Substance: ZOLPIDEM\ZOLPIDEM TARTRATE
  27. PRILOSEC OTC [Suspect]
     Active Substance: OMEPRAZOLE MAGNESIUM
     Indication: GASTROOESOPHAGEAL REFLUX DISEASE
     Route: 048
     Dates: start: 2007, end: 2008
  28. PRILOSEC OTC [Suspect]
     Active Substance: OMEPRAZOLE MAGNESIUM
     Indication: GASTROOESOPHAGEAL REFLUX DISEASE
     Route: 048
     Dates: start: 2007, end: 2018
  29. PROTONIX [Suspect]
     Active Substance: PANTOPRAZOLE SODIUM
     Indication: GASTROOESOPHAGEAL REFLUX DISEASE
     Dosage: GENERIC
     Route: 065
     Dates: start: 2012, end: 2018
  30. FERROUS SULFATE. [Concomitant]
     Active Substance: FERROUS SULFATE
  31. NIFIDIPINE [Concomitant]
  32. ACETAMINOPHENE [Concomitant]
     Active Substance: ACETAMINOPHEN
  33. CEPHALEXIN. [Concomitant]
     Active Substance: CEPHALEXIN
  34. HYDROCODONE [Concomitant]
     Active Substance: HYDROCODONE
  35. VENLAFAXINE [Concomitant]
     Active Substance: VENLAFAXINE HYDROCHLORIDE

REACTIONS (4)
  - Chronic kidney disease [Not Recovered/Not Resolved]
  - Nephrogenic anaemia [Unknown]
  - End stage renal disease [Not Recovered/Not Resolved]
  - Acute kidney injury [Not Recovered/Not Resolved]

NARRATIVE: CASE EVENT DATE: 20160514
